FAERS Safety Report 18212888 (Version 1)
Quarter: 2020Q3

REPORT INFORMATION
  Report Type: Spontaneous
  Country: US (occurrence: US)
  Receive Date: 20200830
  Receipt Date: 20200830
  Transmission Date: 20201103
  Serious: No
  Sender: FDA-Public Use
  Company Number: None

PATIENT
  Sex: Male

DRUGS (1)
  1. TECFIDERA [Suspect]
     Active Substance: DIMETHYL FUMARATE
     Indication: MULTIPLE SCLEROSIS
     Route: 048
     Dates: start: 201910

REACTIONS (7)
  - Insomnia [None]
  - Fatigue [None]
  - Balance disorder [None]
  - Rash [None]
  - Mental impairment [None]
  - Pain [None]
  - Pruritus [None]
